FAERS Safety Report 12807308 (Version 2)
Quarter: 2016Q4

REPORT INFORMATION
  Report Type: Spontaneous
  Country: GB (occurrence: GB)
  Receive Date: 20161004
  Receipt Date: 20161026
  Transmission Date: 20170207
  Serious: Yes (Death)
  Sender: FDA-Public Use
  Company Number: GB-BAYER-2016-187111

PATIENT
  Age: 80 Year
  Sex: Male
  Weight: 93 kg

DRUGS (4)
  1. ACETYLSALICYLIC ACID (} 100 MG) [Suspect]
     Active Substance: ASPIRIN
     Indication: SURGERY
  2. ACETYLSALICYLIC ACID (} 100 MG) [Suspect]
     Active Substance: ASPIRIN
     Indication: AORTIC ANEURYSM
     Dosage: UNK
     Route: 048
     Dates: start: 20160201, end: 20160407
  3. ATORVASTATIN [Suspect]
     Active Substance: ATORVASTATIN
     Indication: SURGERY
  4. ATORVASTATIN [Suspect]
     Active Substance: ATORVASTATIN
     Indication: AORTIC ANEURYSM
     Dosage: UNK
     Route: 048
     Dates: start: 20160201, end: 20160407

REACTIONS (8)
  - Peripheral swelling [Fatal]
  - Obstructive airways disorder [Fatal]
  - Hypersensitivity [Fatal]
  - Laryngeal oedema [Fatal]
  - Circulatory collapse [Fatal]
  - Lip swelling [Fatal]
  - Local swelling [Fatal]
  - Swollen tongue [Fatal]

NARRATIVE: CASE EVENT DATE: 20160201
